FAERS Safety Report 10387209 (Version 1)
Quarter: 2014Q3

REPORT INFORMATION
  Report Type: Spontaneous
  Country: DK (occurrence: FR)
  Receive Date: 20140815
  Receipt Date: 20140815
  Transmission Date: 20150326
  Serious: Yes (Hospitalization)
  Sender: FDA-Public Use
  Company Number: FR-FRI-1000069874

PATIENT
  Age: 81 Year
  Sex: Female

DRUGS (9)
  1. DIFFU K [Concomitant]
     Active Substance: POTASSIUM CHLORIDE
     Dosage: 1 DF
     Route: 048
  2. MULTI VITAMIN [Concomitant]
     Active Substance: VITAMINS
  3. COVERAM 10/10 MG [Concomitant]
     Dosage: 1 DF
     Route: 048
     Dates: start: 201401
  4. TIORFAN [Concomitant]
     Active Substance: RACECADOTRIL
     Dosage: 2 DF
     Route: 048
  5. COTAREG 80 MG / 12.5 MG [Suspect]
     Active Substance: HYDROCHLOROTHIAZIDE\VALSARTAN
     Dosage: 1 DF
     Route: 048
     Dates: start: 201406, end: 20140703
  6. GLUCOPHAGE [Concomitant]
     Active Substance: METFORMIN HYDROCHLORIDE
     Dosage: 1700 MG
     Route: 048
  7. LASILIX [Concomitant]
     Active Substance: FUROSEMIDE
     Dates: end: 201406
  8. ESCITALOPRAM [Suspect]
     Active Substance: ESCITALOPRAM OXALATE
     Dosage: 10 MG
     Route: 048
     Dates: start: 201406, end: 20140704
  9. MINERAL [Concomitant]

REACTIONS (3)
  - Hypochloraemia [Recovered/Resolved]
  - Confusional state [Recovered/Resolved]
  - Hyponatraemia [Recovered/Resolved]

NARRATIVE: CASE EVENT DATE: 20140702
